FAERS Safety Report 11143241 (Version 1)
Quarter: 2015Q2

REPORT INFORMATION
  Report Type: Spontaneous
  Country: US (occurrence: US)
  Receive Date: 20150526
  Receipt Date: 20150526
  Transmission Date: 20150821
  Serious: No
  Sender: FDA-Public Use
  Company Number: US-NOVEN PHARMACEUTICALS, INC.-US2015000073

PATIENT
  Sex: Female

DRUGS (2)
  1. MINIVELLE [Suspect]
     Active Substance: ESTRADIOL
     Indication: PRODUCT USED FOR UNKNOWN INDICATION
     Route: 062
  2. VIVELLE-DOT [Concomitant]
     Active Substance: ESTRADIOL

REACTIONS (4)
  - Asthenia [Recovered/Resolved]
  - Somnolence [Recovered/Resolved]
  - Product adhesion issue [Unknown]
  - Drug ineffective [Unknown]
